FAERS Safety Report 10213855 (Version 1)
Quarter: 2014Q2

REPORT INFORMATION
  Report Type: Spontaneous
  Country: CA (occurrence: None)
  Receive Date: 20140529
  Receipt Date: 20140529
  Transmission Date: 20141212
  Serious: Yes (Other)
  Sender: FDA-Public Use
  Company Number: 2014AP003101

PATIENT
  Age: 60 Year
  Sex: Female

DRUGS (1)
  1. APO-AZITHROMYCIN (AZITHROMYCIN) [Suspect]
     Indication: PHARYNGITIS

REACTIONS (1)
  - Drug reaction with eosinophilia and systemic symptoms [None]
